FAERS Safety Report 8055039-4 (Version None)
Quarter: 2012Q1

REPORT INFORMATION
  Report Type: 
  Country: None (occurrence: None)
  Receive Date: 20120119
  Receipt Date: 20120112
  Transmission Date: 20120608
  Serious: Yes (Disabling, Other)
  Sender: FDA-Public Use
  Company Number: GB-PFIZER INC-K200500291

PATIENT
  Age: 66 Year
  Sex: Female
  Weight: 113.3 kg

DRUGS (13)
  1. QUININE SULFATE [Concomitant]
     Indication: MUSCLE SPASMS
     Dosage: 300 MG
     Route: 048
     Dates: start: 20030901
  2. SPIRONOLACTONE [Concomitant]
     Indication: HYPERTENSION
     Dosage: 50 MG
     Route: 048
     Dates: start: 20040112
  3. DOXAZOSIN [Concomitant]
     Indication: HYPERTENSION
     Dosage: 2 MG
     Route: 048
     Dates: start: 20021125
  4. DIAZEPAM [Concomitant]
     Indication: ANXIETY DISORDER
     Dosage: 2 MG, AS NEEDED
     Route: 048
     Dates: start: 20020101
  5. ALTACE [Suspect]
     Indication: HYPERTENSION
     Dosage: 10 MG, 1X/DAY
     Route: 048
     Dates: start: 19980101, end: 20050112
  6. ALLOPURINOL [Suspect]
     Indication: GOUT
     Dosage: 200 MG, 1X/DAY
     Route: 048
     Dates: start: 20030509, end: 20041230
  7. ATORVASTATIN [Concomitant]
     Indication: DYSLIPIDAEMIA
     Dosage: 10 MG
     Route: 048
     Dates: start: 20020225
  8. METFORMIN [Concomitant]
     Indication: DIABETES MELLITUS
     Dosage: 500 MG, 3X/DAY
     Route: 048
     Dates: start: 19960614, end: 20050112
  9. OMEPRAZOLE [Concomitant]
     Indication: DYSPEPSIA
     Dosage: 20 MG
     Route: 048
     Dates: start: 20030509
  10. ASPIRIN [Concomitant]
     Indication: PROPHYLAXIS
     Dosage: 75 MG
     Route: 048
     Dates: start: 19890106
  11. HUMALOG [Concomitant]
     Indication: DIABETES MELLITUS
     Dosage: 100 IU/ML, 40 UNITS, 2X/DAY
     Route: 058
     Dates: start: 20010501
  12. LYRICA [Suspect]
     Indication: DIABETIC NEUROPATHY
     Dosage: 100 MG, 3X/DAY
     Route: 048
     Dates: start: 20021106
  13. BUMETANIDE [Concomitant]
     Indication: HYPERTENSION
     Dosage: 5 MG
     Route: 048
     Dates: start: 20010908

REACTIONS (4)
  - PSORIASIS [None]
  - ECZEMA [None]
  - LICHEN SCLEROSUS [None]
  - DRY SKIN [None]
